FAERS Safety Report 9778378 (Version 3)
Quarter: 2014Q1

REPORT INFORMATION
  Report Type: Report from Study
  Country: PE (occurrence: PE)
  Receive Date: 20131223
  Receipt Date: 20140309
  Transmission Date: 20141002
  Serious: Yes (Other)
  Sender: FDA-Public Use
  Company Number: PE-US-EMD SERONO, INC.-7258125

PATIENT
  Age: 47 Year
  Sex: Male

DRUGS (3)
  1. REBIF [Suspect]
     Indication: MULTIPLE SCLEROSIS
     Dosage: 132 MCG/ 1.5 ML FORM STRENGTH
     Route: 058
     Dates: start: 20121205, end: 201312
  2. REBIF [Suspect]
  3. PANADOL                            /00020001/ [Concomitant]
     Indication: PRODUCT USED FOR UNKNOWN INDICATION

REACTIONS (3)
  - Necrosis [Recovering/Resolving]
  - Herpes virus infection [Recovering/Resolving]
  - Wrong technique in drug usage process [Recovering/Resolving]
